FAERS Safety Report 11881363 (Version 2)
Quarter: 2017Q1

REPORT INFORMATION
  Report Type: Spontaneous
  Country: US (occurrence: US)
  Receive Date: 20151231
  Receipt Date: 20170331
  Transmission Date: 20170428
  Serious: Yes (Hospitalization)
  Sender: FDA-Public Use
  Company Number: US-ASTRAZENECA-2015SF27119

PATIENT
  Age: 39 Year
  Sex: Female
  Weight: 72.6 kg

DRUGS (18)
  1. PRILOSEC [Suspect]
     Active Substance: OMEPRAZOLE MAGNESIUM
     Indication: HIATUS HERNIA
     Dosage: OMEPRAZOLE, 20 MG DAILY
     Route: 048
     Dates: end: 2015
  2. CRESTOR [Suspect]
     Active Substance: ROSUVASTATIN CALCIUM
     Indication: BLOOD CHOLESTEROL INCREASED
     Route: 048
     Dates: start: 201611
  3. ALLOPURINOL. [Concomitant]
     Active Substance: ALLOPURINOL
     Indication: GOUT
     Route: 048
     Dates: start: 2011
  4. ZOCOR [Concomitant]
     Active Substance: SIMVASTATIN
     Indication: BLOOD CHOLESTEROL ABNORMAL
     Dates: start: 1995
  5. ALPHA LIPOIC ACID [Concomitant]
     Active Substance: .ALPHA.-LIPOIC ACID
     Dosage: DAILY
     Route: 048
  6. FLAGYL [Concomitant]
     Active Substance: METRONIDAZOLE\METRONIDAZOLE HYDROCHLORIDE
     Indication: DIVERTICULITIS
     Dates: start: 2005
  7. MULTIVITAMIN [Concomitant]
     Active Substance: VITAMINS
     Dosage: DAILY
     Route: 048
     Dates: start: 1951
  8. HERBAL NOS [Concomitant]
     Active Substance: HERBALS
     Route: 048
  9. CIPRO [Concomitant]
     Active Substance: CIPROFLOXACIN HYDROCHLORIDE
     Indication: DIVERTICULITIS
     Dates: start: 2005
  10. COLCRYS [Concomitant]
     Active Substance: COLCHICINE
     Indication: GOUT
     Dates: start: 201101
  11. PRILOSEC [Suspect]
     Active Substance: OMEPRAZOLE MAGNESIUM
     Indication: GASTROOESOPHAGEAL REFLUX DISEASE
     Route: 048
     Dates: start: 1990
  12. GREEN TEA SUPPLEMENT [Concomitant]
     Route: 048
  13. PRILOSEC [Suspect]
     Active Substance: OMEPRAZOLE MAGNESIUM
     Indication: GASTROOESOPHAGEAL REFLUX DISEASE
     Route: 048
     Dates: start: 1990
  14. PRILOSEC [Suspect]
     Active Substance: OMEPRAZOLE MAGNESIUM
     Indication: HIATUS HERNIA
     Route: 048
     Dates: start: 1990
  15. PRILOSEC [Suspect]
     Active Substance: OMEPRAZOLE MAGNESIUM
     Indication: GASTROOESOPHAGEAL REFLUX DISEASE
     Dosage: OMEPRAZOLE, 20 MG DAILY
     Route: 048
     Dates: end: 2015
  16. SIMVASTATIN. [Concomitant]
     Active Substance: SIMVASTATIN
     Indication: BLOOD CHOLESTEROL ABNORMAL
     Route: 048
     Dates: start: 1995
  17. PRILOSEC [Suspect]
     Active Substance: OMEPRAZOLE MAGNESIUM
     Indication: GASTROOESOPHAGEAL REFLUX DISEASE
     Dosage: OMEPRAZOLE, 20 MG DAILY
     Route: 048
     Dates: end: 2015
  18. ASPIRIN. [Concomitant]
     Active Substance: ASPIRIN
     Indication: DRUG THERAPY
     Route: 048

REACTIONS (8)
  - Blood cholesterol increased [Unknown]
  - Blood triglycerides increased [Unknown]
  - Dyspepsia [Unknown]
  - Product use issue [Unknown]
  - Blood magnesium decreased [Unknown]
  - Off label use [Unknown]
  - Diverticulitis [Recovered/Resolved]
  - Gout [Recovered/Resolved]

NARRATIVE: CASE EVENT DATE: 1990
